FAERS Safety Report 15508525 (Version 1)
Quarter: 2018Q4

REPORT INFORMATION
  Report Type: Spontaneous
  Country: US (occurrence: US)
  Receive Date: 20181016
  Receipt Date: 20181016
  Transmission Date: 20190205
  Serious: Yes (Hospitalization)
  Sender: FDA-Public Use
  Company Number: US-MALLINCKRODT-T201804408

PATIENT
  Sex: Female
  Weight: 41 kg

DRUGS (3)
  1. H.P. ACTHAR [Suspect]
     Active Substance: CORTICOTROPIN
     Indication: MYOPATHY
  2. H.P. ACTHAR [Suspect]
     Active Substance: CORTICOTROPIN
     Indication: POLYMYOSITIS
     Dosage: 80 UNITS/1 ML, 2 TIMES PER WEEK
     Route: 058
     Dates: start: 201802
  3. SAPHRIS [Concomitant]
     Active Substance: ASENAPINE MALEATE
     Indication: ANXIETY
     Dosage: UNK
     Route: 065

REACTIONS (3)
  - Rectal haemorrhage [Unknown]
  - Blood urine present [Unknown]
  - Infection [Unknown]

NARRATIVE: CASE EVENT DATE: 2018
